FAERS Safety Report 4587082-1 (Version None)
Quarter: 2005Q1

REPORT INFORMATION
  Report Type: 
  Country: None (occurrence: None)
  Receive Date: 20050214
  Receipt Date: 20050131
  Transmission Date: 20050727
  Serious: Yes (Hospitalization)
  Sender: FDA-Public Use
  Company Number: MEDI-0002164

PATIENT
  Age: 3 Month
  Sex: Male
  Weight: 3.8 kg

DRUGS (7)
  1. SYNAGIS [Suspect]
     Indication: ANTIVIRAL PROPHYLAXIS
     Dosage: SEE IMAGE
     Route: 030
     Dates: start: 20031024, end: 20031215
  2. SYNAGIS [Suspect]
     Indication: ANTIVIRAL PROPHYLAXIS
     Dosage: SEE IMAGE
     Route: 030
     Dates: start: 20031117
  3. SYNAGIS [Suspect]
     Indication: ANTIVIRAL PROPHYLAXIS
     Dosage: SEE IMAGE
     Route: 030
     Dates: start: 20040119
  4. SYNAGIS [Suspect]
     Indication: ANTIVIRAL PROPHYLAXIS
     Dosage: SEE IMAGE
     Route: 030
     Dates: start: 20040220
  5. SYNAGIS [Suspect]
     Indication: ANTIVIRAL PROPHYLAXIS
     Dosage: SEE IMAGE
     Route: 030
     Dates: start: 20040319
  6. FERRIC PYROPHOSPHATE           (FERRIC PYROPHOSPHATE) [Concomitant]
  7. ALFACALCIDOL        (ALFACALCIDOL) [Concomitant]

REACTIONS (9)
  - ASTHMA [None]
  - BRONCHITIS VIRAL [None]
  - COUGH [None]
  - DYSPNOEA [None]
  - POOR SUCKING REFLEX [None]
  - PROTEIN URINE PRESENT [None]
  - SNEEZING [None]
  - STRIDOR [None]
  - URINE KETONE BODY PRESENT [None]
